FAERS Safety Report 7413225-8 (Version None)
Quarter: 2011Q2

REPORT INFORMATION
  Report Type: 
  Country: None (occurrence: None)
  Receive Date: 20110405
  Receipt Date: 20110317
  Transmission Date: 20111010
  Serious: Yes (Death)
  Sender: FDA-Public Use
  Company Number: 2011P1005304

PATIENT
  Age: 48 Year
  Sex: Male

DRUGS (5)
  1. LAMOTRIGINE [Suspect]
     Dosage: PO
     Route: 048
  2. METHADON HCL TAB [Suspect]
     Dosage: PO
     Route: 048
  3. CITALOPRAM HYDROBROMIDE [Suspect]
     Dosage: PO
     Route: 048
  4. AMLODIPINE [Suspect]
     Dosage: PO
     Route: 048
  5. LOTENSIN [Suspect]
     Dosage: PO
     Route: 048

REACTIONS (1)
  - COMPLETED SUICIDE [None]
